FAERS Safety Report 8388057-7 (Version None)
Quarter: 2012Q2

REPORT INFORMATION
  Report Type: 
  Country: None (occurrence: None)
  Receive Date: 20120525
  Receipt Date: 20120522
  Transmission Date: 20120825
  Serious: Yes (Congenital Anomaly)
  Sender: FDA-Public Use
  Company Number: US-ABBOTT-12P-163-0920641-00

PATIENT
  Sex: Male

DRUGS (2)
  1. KALETRA [Suspect]
     Indication: MATERNAL EXPOSURE TIMING UNSPECIFIED
     Route: 064
  2. COMBIVIR [Suspect]
     Indication: MATERNAL EXPOSURE TIMING UNSPECIFIED
     Dosage: 2 TABS DAILY
     Route: 048

REACTIONS (4)
  - HYPOTONIA NEONATAL [None]
  - PREMATURE BABY [None]
  - FOETAL EXPOSURE DURING PREGNANCY [None]
  - CONGENITAL MYOPATHY [None]
